FAERS Safety Report 9378698 (Version 2)
Quarter: 2013Q3

REPORT INFORMATION
  Report Type: Spontaneous
  Country: AR (occurrence: AR)
  Receive Date: 20130702
  Receipt Date: 20130726
  Transmission Date: 20140515
  Serious: Yes (Hospitalization)
  Sender: FDA-Public Use
  Company Number: AR-BIOGENIDEC-2013BI059395

PATIENT
  Age: 50 Year
  Sex: Male

DRUGS (5)
  1. AVONEX [Suspect]
     Indication: MULTIPLE SCLEROSIS
     Route: 030
     Dates: start: 2004, end: 201112
  2. AVONEX [Suspect]
     Indication: MULTIPLE SCLEROSIS
     Route: 030
     Dates: start: 201304
  3. ALPRAZOLAM [Concomitant]
  4. QUETIAPINA [Concomitant]
  5. LEVETIRACETAM [Concomitant]

REACTIONS (1)
  - Chronic obstructive pulmonary disease [Recovered/Resolved]
